FAERS Safety Report 14648325 (Version 2)
Quarter: 2018Q2

REPORT INFORMATION
  Report Type: Spontaneous
  Country: CN (occurrence: CN)
  Receive Date: 20180316
  Receipt Date: 20180402
  Transmission Date: 20180711
  Serious: Yes (Death, Hospitalization, Other)
  Sender: FDA-Public Use
  Company Number: CN-ABBVIE-18P-035-2287933-00

PATIENT
  Age: 16 Year
  Sex: Male

DRUGS (4)
  1. VALPROATE SODIUM. [Suspect]
     Active Substance: VALPROATE SODIUM
     Indication: MANIA
     Route: 048
  2. OLANZAPINE. [Suspect]
     Active Substance: OLANZAPINE
     Indication: MANIA
     Route: 048
  3. HALOPERIDOL. [Concomitant]
     Active Substance: HALOPERIDOL
     Indication: PRODUCT USED FOR UNKNOWN INDICATION
  4. OLANZAPINE. [Suspect]
     Active Substance: OLANZAPINE
     Route: 048

REACTIONS (35)
  - Pyrexia [Unknown]
  - Macule [Unknown]
  - Skin discolouration [Unknown]
  - Rash generalised [Unknown]
  - Rash [Unknown]
  - White blood cell count increased [Unknown]
  - Pneumonia [Fatal]
  - Scab [Unknown]
  - Skin exfoliation [Unknown]
  - Red blood cell sedimentation rate increased [Unknown]
  - Bilirubin conjugated increased [Unknown]
  - Blood bilirubin unconjugated increased [Unknown]
  - Alanine aminotransferase increased [Unknown]
  - Blood alkaline phosphatase increased [Unknown]
  - Product use issue [Unknown]
  - Procalcitonin increased [Unknown]
  - Chromaturia [Unknown]
  - Blood bilirubin increased [Unknown]
  - Ocular icterus [Unknown]
  - Delirium [Unknown]
  - Circulatory collapse [Unknown]
  - Decreased appetite [Unknown]
  - Lymph node palpable [Unknown]
  - Lymphadenopathy [Unknown]
  - Platelet count decreased [Unknown]
  - Gamma-glutamyltransferase increased [Unknown]
  - Pneumonitis [Unknown]
  - Respiratory failure [Fatal]
  - Toxic epidermal necrolysis [Fatal]
  - Rash erythematous [Unknown]
  - Acute hepatic failure [Fatal]
  - Liver palpable [Unknown]
  - Blood albumin decreased [Unknown]
  - Aspartate aminotransferase increased [Unknown]
  - Atelectasis [Unknown]
